FAERS Safety Report 6661681-5 (Version None)
Quarter: 2010Q1

REPORT INFORMATION
  Report Type: 
  Country: None (occurrence: None)
  Receive Date: 20100331
  Receipt Date: 20090414
  Transmission Date: 20100710
  Serious: Yes (Other)
  Sender: FDA-Public Use
  Company Number: US-BRISTOL-MYERS SQUIBB COMPANY-14587166

PATIENT
  Age: 6 Decade
  Sex: Male

DRUGS (1)
  1. ERBITUX [Suspect]
     Indication: HEAD AND NECK CANCER
     Dosage: RECEIVED FIRST INFUSION APPROXIMATELY FOUR WEEKS AGO.
     Dates: start: 20090101, end: 20090101

REACTIONS (1)
  - ANAPHYLACTIC REACTION [None]
